FAERS Safety Report 5814269-X (Version None)
Quarter: 2008Q3

REPORT INFORMATION
  Report Type: 
  Country: None (occurrence: None)
  Receive Date: 20080715
  Receipt Date: 20080619
  Transmission Date: 20090109
  Serious: Yes (Other)
  Sender: FDA-Public Use
  Company Number: 2008-00007

PATIENT
  Age: 62 Year
  Sex: Female
  Weight: 58.9676 kg

DRUGS (1)
  1. SUN BATH PROTECTIVE TANNING LOTION [Suspect]
     Indication: PROPHYLAXIS AGAINST SOLAR RADIATION
     Dosage: TOPICAL
     Route: 061
     Dates: start: 20080525, end: 20080601

REACTIONS (1)
  - OPTIC NEURITIS [None]
